FAERS Safety Report 4439775-4 (Version None)
Quarter: 2004Q3

REPORT INFORMATION
  Report Type: 
  Country: None (occurrence: None)
  Receive Date: 20040831
  Receipt Date: 20040819
  Transmission Date: 20050211
  Serious: No
  Sender: FDA-Public Use
  Company Number: 2004AP04378

PATIENT
  Age: 76 Year
  Sex: Female

DRUGS (6)
  1. OMEPRAL [Suspect]
     Indication: REFLUX OESOPHAGITIS
     Dates: start: 20031218
  2. PRONON [Concomitant]
  3. LENDORM [Concomitant]
  4. CARVEDILOL [Concomitant]
  5. NU LOTAN [Concomitant]
  6. ALOSENN [Concomitant]

REACTIONS (1)
  - RHABDOMYOLYSIS [None]
